FAERS Safety Report 5420884-8 (Version None)
Quarter: 2007Q3

REPORT INFORMATION
  Report Type: 
  Country: None (occurrence: None)
  Receive Date: 20070817
  Receipt Date: 20070817
  Transmission Date: 20080115
  Serious: Yes (Other)
  Sender: FDA-Public Use
  Company Number: None

PATIENT
  Age: 90 Year
  Sex: Female
  Weight: 52.8894 kg

DRUGS (17)
  1. CASPOFUNGIN 70 MG [Suspect]
     Indication: URINARY TRACT INFECTION FUNGAL
     Dosage: 70 MG ONE TIME IV BOLUS
     Route: 040
     Dates: start: 20070606, end: 20070606
  2. LOPERAMIDE HCL [Concomitant]
  3. ECONAZOLE CREAM [Concomitant]
  4. TRIAMCINOLONE [Concomitant]
  5. HYDROXYZINE TABLETS [Concomitant]
  6. ALBUTEROL [Concomitant]
  7. ENOXAPARIN DVT PROPHYLAXIS [Concomitant]
  8. ACETAMINOPHEN [Concomitant]
  9. METRONIDAZOLE [Concomitant]
  10. METOCLOPRAMIDE [Concomitant]
  11. PANTOPRAZOLE SODIUM [Concomitant]
  12. BRIMONIDINE TARTRATE [Concomitant]
  13. DORZOLAMIDE HCL AND TIMOLOL MALEATE [Concomitant]
  14. LEVOTHYROXINE SODIUM [Concomitant]
  15. MORPHINE [Concomitant]
  16. ONDANSETRON [Concomitant]
  17. MILK OF MAGNESIA [Concomitant]

REACTIONS (1)
  - HYPOTENSION [None]
